FAERS Safety Report 9165385 (Version 1)
Quarter: 2013Q1

REPORT INFORMATION
  Report Type: Spontaneous
  Country: GB (occurrence: None)
  Receive Date: 20130301
  Receipt Date: 20130301
  Transmission Date: 20140127
  Serious: Yes (Other)
  Sender: FDA-Public Use
  Company Number: 2013-000527

PATIENT
  Age: 51 Year
  Sex: Female
  Weight: 84.5 kg

DRUGS (1)
  1. ASACOL [Suspect]
     Indication: COLITIS ULCERATIVE
     Route: 048
     Dates: start: 20121121, end: 20121204

REACTIONS (2)
  - Suicidal ideation [None]
  - Tinnitus [None]
